FAERS Safety Report 17115915 (Version 3)
Quarter: 2020Q1

REPORT INFORMATION
  Report Type: Spontaneous
  Country: US (occurrence: US)
  Receive Date: 20191205
  Receipt Date: 20200128
  Transmission Date: 20200409
  Serious: No
  Sender: FDA-Public Use
  Company Number: US-PFIZER INC-2019523152

PATIENT
  Age: 82 Year
  Sex: Female
  Weight: 68.4 kg

DRUGS (1)
  1. VYNDAQEL [Suspect]
     Active Substance: TAFAMIDIS MEGLUMINE
     Indication: AMYLOIDOSIS
     Dosage: 80 MG, 1X/DAY (20MG CAPSULE, 4 CAPSULES ONCE A DAY BY MOUTH)
     Route: 048
     Dates: start: 201909

REACTIONS (3)
  - Product use in unapproved indication [Unknown]
  - Visual impairment [Not Recovered/Not Resolved]
  - Off label use [Unknown]

NARRATIVE: CASE EVENT DATE: 201909
